FAERS Safety Report 5741667-5 (Version None)
Quarter: 2008Q2

REPORT INFORMATION
  Report Type: 
  Country: None (occurrence: None)
  Receive Date: 20080519
  Receipt Date: 20070201
  Transmission Date: 20081010
  Serious: Yes (Hospitalization)
  Sender: FDA-Public Use
  Company Number: US-BAYER-US-2007-003640

PATIENT
  Age: 41 Year
  Sex: Male

DRUGS (1)
  1. ULTRAVIST 300 [Suspect]
     Indication: COMPUTERISED TOMOGRAM THORAX
     Dosage: UNIT DOSE: 150 ML
     Route: 042
     Dates: start: 20070124, end: 20070124

REACTIONS (6)
  - ANAPHYLACTIC REACTION [None]
  - ANXIETY [None]
  - CHEST PAIN [None]
  - DEPRESSED LEVEL OF CONSCIOUSNESS [None]
  - ERYTHEMA [None]
  - RESPIRATORY RATE INCREASED [None]
